FAERS Safety Report 25790851 (Version 1)
Quarter: 2025Q3

REPORT INFORMATION
  Report Type: Spontaneous
  Country: US (occurrence: None)
  Receive Date: 20250911
  Receipt Date: 20250911
  Transmission Date: 20251021
  Serious: Yes (Hospitalization)
  Sender: FDA-CTU
  Company Number: None

PATIENT
  Age: 66 Year
  Sex: Male
  Weight: 80.6 kg

DRUGS (3)
  1. FLUOROURACIL [Suspect]
     Active Substance: FLUOROURACIL
     Dates: start: 20250724
  2. LEUCOVORIN CALCIUM [Suspect]
     Active Substance: LEUCOVORIN CALCIUM
     Dates: start: 20250722
  3. ELOXATIN [Suspect]
     Active Substance: OXALIPLATIN
     Dates: start: 20250722

REACTIONS (13)
  - Urinary retention [None]
  - Bladder spasm [None]
  - Haematuria [None]
  - Diarrhoea [None]
  - Pyrexia [None]
  - Asthenia [None]
  - Abdominal discomfort [None]
  - Dysstasia [None]
  - Hypotension [None]
  - Diverticulum intestinal [None]
  - Leukopenia [None]
  - Hypokalaemia [None]
  - Hypophagia [None]

NARRATIVE: CASE EVENT DATE: 20250730
